FAERS Safety Report 7437077-5 (Version None)
Quarter: 2011Q2

REPORT INFORMATION
  Report Type: 
  Country: None (occurrence: None)
  Receive Date: 20110426
  Receipt Date: 20110414
  Transmission Date: 20111010
  Serious: Yes (Hospitalization)
  Sender: FDA-Public Use
  Company Number: SG-ELI_LILLY_AND_COMPANY-SG201104004119

PATIENT
  Sex: Male
  Weight: 82.1 kg

DRUGS (9)
  1. PERMIXON [Concomitant]
     Dosage: 2 DF, EVERY 6 HRS
  2. SIMVASTATIN [Concomitant]
     Dosage: 20 MG, EACH EVENING
  3. NECITUMUMAB (11F8) (LY3012211) [Suspect]
     Indication: NON-SMALL CELL LUNG CANCER STAGE IV
     Dosage: 800 MG, OTHER
     Route: 042
     Dates: start: 20110324, end: 20110401
  4. CISPLATIN [Suspect]
     Indication: NON-SMALL CELL LUNG CANCER STAGE IV
     Dosage: 148 MG, OTHER
     Route: 042
     Dates: start: 20110324, end: 20110324
  5. VENTOLIN HFA [Concomitant]
     Dosage: 2 DF, EVERY 6 HRS
     Route: 055
  6. GEMCITABINE HYDROCHLORIDE [Suspect]
     Indication: NON-SMALL CELL LUNG CANCER STAGE IV
     Dosage: 1871 MG, OTHER
     Route: 042
     Dates: start: 20110324, end: 20110401
  7. PLAVIX [Concomitant]
     Dosage: 75 MG, UNK
     Dates: start: 20010101, end: 20110413
  8. BISOPROLOL [Concomitant]
     Dosage: 5 MG, UNK
  9. PROCODIN [Concomitant]
     Dosage: 10 ML, TID

REACTIONS (1)
  - GASTROINTESTINAL HAEMORRHAGE [None]
